FAERS Safety Report 22113418 (Version 1)
Quarter: 2023Q1

REPORT INFORMATION
  Report Type: Report from Study
  Country: US (occurrence: US)
  Receive Date: 20230320
  Receipt Date: 20230320
  Transmission Date: 20230417
  Serious: No
  Sender: FDA-Public Use
  Company Number: US-002147023-NVSC2023US059997

PATIENT
  Sex: Male

DRUGS (4)
  1. HALOBETASOL PROPIONATE [Suspect]
     Active Substance: HALOBETASOL PROPIONATE
     Indication: Psoriasis
     Route: 061
  2. BETAMETHASONE DIPROPIONATE [Suspect]
     Active Substance: BETAMETHASONE DIPROPIONATE
     Indication: Psoriasis
     Route: 061
  3. CLOBETASOL [Suspect]
     Active Substance: CLOBETASOL
     Indication: Psoriasis
     Route: 061
  4. COSENTYX [Suspect]
     Active Substance: SECUKINUMAB
     Indication: Psoriasis
     Dosage: 300 MG, QW4
     Route: 058

REACTIONS (1)
  - Psoriasis [Unknown]
